FAERS Safety Report 8539408-1 (Version None)
Quarter: 2012Q3

REPORT INFORMATION
  Report Type: 
  Country: None (occurrence: None)
  Receive Date: 20120726
  Receipt Date: 20120711
  Transmission Date: 20120928
  Serious: Yes (Other)
  Sender: FDA-Public Use
  Company Number: JP-009507513-1207JPN002329

PATIENT

DRUGS (3)
  1. FAMOTIDINE [Suspect]
     Dosage: 10 MG, QD
     Route: 048
  2. SELBEX [Concomitant]
     Dosage: UNK
     Route: 048
     Dates: end: 20120628
  3. FAMOTIDINE [Suspect]
     Indication: GASTRITIS
     Dosage: 20 MG, BID
     Route: 048
     Dates: start: 20120625, end: 20120628

REACTIONS (2)
  - LIVER FUNCTION TEST ABNORMAL [None]
  - RASH PAPULAR [None]
